FAERS Safety Report 25984099 (Version 2)
Quarter: 2025Q4

REPORT INFORMATION
  Report Type: Spontaneous
  Country: US (occurrence: US)
  Receive Date: 20251031
  Receipt Date: 20251111
  Transmission Date: 20260117
  Serious: No
  Sender: MYLAN
  Company Number: US-MYLANLABS-2025M1090566

PATIENT
  Age: 59 Year
  Sex: Female
  Weight: 81.65 kg

DRUGS (5)
  1. ELESTRIN [Suspect]
     Active Substance: ESTRADIOL
     Indication: Hormone replacement therapy
     Dosage: UNK, PM (ONCE A NIGHT)
  2. ELESTRIN [Suspect]
     Active Substance: ESTRADIOL
     Dosage: UNK, TID (THREE TIMES A DAY)
     Dates: start: 202510
  3. ELESTRIN [Suspect]
     Active Substance: ESTRADIOL
     Dosage: 0.52 MILLIGRAM, QD (ONE PUMP DAILY ON ALTERNATING ARMS)
  4. ELESTRIN [Suspect]
     Active Substance: ESTRADIOL
     Dosage: 0.52 MILLIGRAM, QD (ONE PUMP DAILY ON ALTERNATING ARMS)
  5. PROMETRIUM [Concomitant]
     Active Substance: PROGESTERONE
     Dosage: 200 MILLIGRAM, QD (ONCE DAILY)

REACTIONS (2)
  - Drug ineffective [Unknown]
  - Product physical consistency issue [Unknown]

NARRATIVE: CASE EVENT DATE: 20251001
